FAERS Safety Report 6369315-4 (Version None)
Quarter: 2009Q3

REPORT INFORMATION
  Report Type: 
  Country: None (occurrence: None)
  Receive Date: 20090916
  Receipt Date: 20090904
  Transmission Date: 20100115
  Serious: Yes (Other)
  Sender: FDA-Public Use
  Company Number: CAP09000227

PATIENT
  Age: 74 Year
  Sex: Female

DRUGS (3)
  1. ACTONEL [Suspect]
     Indication: OSTEOPENIA
     Dosage: 35 MG ONCE WEEKLY, ORAL
     Route: 048
     Dates: start: 20010101
  2. LIPITOR [Concomitant]
  3. PHOSPHATIDYL SERINE (PHOSPHATIDYL SERINE) [Concomitant]

REACTIONS (1)
  - BRAIN NEOPLASM [None]
